FAERS Safety Report 10235821 (Version 1)
Quarter: 2014Q1

REPORT INFORMATION
  Report Type: Spontaneous
  Country: US (occurrence: None)
  Receive Date: 20140306
  Receipt Date: 20140306
  Transmission Date: 20141002
  Serious: Yes (Hospitalization)
  Sender: FDA-Public Use
  Company Number: 163-21880-13111437

PATIENT
  Age: 77 Year
  Sex: Male

DRUGS (4)
  1. REVLIMID [Suspect]
     Indication: PLASMA CELL MYELOMA
     Route: 048
     Dates: start: 20121127
  2. BENAZEPRIL HCL (BENAZEPRIL HYDROCHLORIDE)(UKNOWN) [Concomitant]
  3. LEVOTHYROXINE [Concomitant]
  4. MEGESTEROL ACETATE (MEGESTROL ACETATE)(UKNOWN) [Concomitant]

REACTIONS (1)
  - Infection [None]
